FAERS Safety Report 13096153 (Version 1)
Quarter: 2017Q1

REPORT INFORMATION
  Report Type: Spontaneous
  Country: DE (occurrence: DE)
  Receive Date: 20170109
  Receipt Date: 20170109
  Transmission Date: 20170428
  Serious: Yes (Hospitalization, Disabling, Other)
  Sender: FDA-Public Use
  Company Number: DE-SUN PHARMACEUTICAL INDUSTRIES LTD-2016RR-121894

PATIENT
  Sex: Male

DRUGS (16)
  1. ESCITALOPRAM BASICS 10 MG FILMTABLETTEN [Suspect]
     Active Substance: ESCITALOPRAM OXALATE
     Dosage: 1-0-1/2
     Route: 065
     Dates: start: 20151119
  2. TETMODIS [Concomitant]
     Indication: PRODUCT USED FOR UNKNOWN INDICATION
     Dosage: UNK
     Route: 065
     Dates: start: 201604, end: 201605
  3. CITALOPRAM BASICS [Suspect]
     Active Substance: CITALOPRAM HYDROBROMIDE
     Indication: DEPRESSIVE SYMPTOM
     Dosage: 15 MG
     Route: 048
     Dates: start: 20151112
  4. AKINETON [Concomitant]
     Active Substance: BIPERIDEN HYDROCHLORIDE
     Indication: PRODUCT USED FOR UNKNOWN INDICATION
     Dosage: UNK
     Route: 065
     Dates: start: 201512
  5. DIAZEPAM. [Concomitant]
     Active Substance: DIAZEPAM
     Indication: PRODUCT USED FOR UNKNOWN INDICATION
     Dosage: UNK
     Route: 065
     Dates: start: 201603, end: 201604
  6. BIOLIN [Concomitant]
     Indication: PRODUCT USED FOR UNKNOWN INDICATION
     Dosage: UNK
     Route: 065
     Dates: start: 201605
  7. RISPERIDON ATID FTA [Suspect]
     Active Substance: RISPERIDONE
     Indication: DEPRESSION
     Dosage: UP TO 4 MG
     Route: 065
     Dates: start: 201508, end: 201602
  8. QUETIAPINE. [Concomitant]
     Active Substance: QUETIAPINE
     Indication: PRODUCT USED FOR UNKNOWN INDICATION
     Dosage: UNK
     Route: 065
     Dates: start: 201511, end: 201512
  9. ESCITALOPRAM BASICS 10 MG FILMTABLETTEN [Suspect]
     Active Substance: ESCITALOPRAM OXALATE
     Indication: PRODUCT USED FOR UNKNOWN INDICATION
     Dosage: 1/2-0-1/2
     Route: 065
     Dates: start: 20151112
  10. MELPERON ARISTO [Suspect]
     Active Substance: MELPERONE HYDROCHLORIDE
     Indication: EPILEPSY
     Dosage: UNK
     Route: 065
     Dates: start: 201512, end: 201603
  11. OLANZAPINE. [Concomitant]
     Active Substance: OLANZAPINE
     Indication: PRODUCT USED FOR UNKNOWN INDICATION
     Dosage: UNK
     Route: 065
     Dates: start: 201601, end: 201602
  12. ESCITALOPRAM BASICS 10 MG FILMTABLETTEN [Suspect]
     Active Substance: ESCITALOPRAM OXALATE
     Dosage: 1-0-0
     Route: 065
     Dates: start: 20151123
  13. MIRTAZAPINE. [Concomitant]
     Active Substance: MIRTAZAPINE
     Indication: PRODUCT USED FOR UNKNOWN INDICATION
     Dosage: UNK
     Route: 065
     Dates: start: 201512, end: 201602
  14. DOCITON [Concomitant]
     Active Substance: PROPRANOLOL HYDROCHLORIDE
     Indication: PRODUCT USED FOR UNKNOWN INDICATION
     Dosage: UNK
     Route: 065
     Dates: start: 201604
  15. FOLGAMMA [Concomitant]
     Active Substance: CYANOCOBALAMIN\FOLIC ACID
     Indication: PRODUCT USED FOR UNKNOWN INDICATION
     Dosage: UNK
     Route: 065
     Dates: start: 201603, end: 201605
  16. PARKOPAN [Concomitant]
     Active Substance: TRIHEXYPHENIDYL HYDROCHLORIDE
     Indication: PRODUCT USED FOR UNKNOWN INDICATION
     Dosage: UNK
     Route: 065
     Dates: start: 201603

REACTIONS (4)
  - Akathisia [Recovering/Resolving]
  - Restlessness [Recovering/Resolving]
  - Dystonia [Recovering/Resolving]
  - Tardive dyskinesia [Recovering/Resolving]

NARRATIVE: CASE EVENT DATE: 20151123
